FAERS Safety Report 23181195 (Version 1)
Quarter: 2023Q4

REPORT INFORMATION
  Report Type: Report from Study
  Country: US (occurrence: US)
  Receive Date: 20231114
  Receipt Date: 20231114
  Transmission Date: 20240109
  Serious: No
  Sender: FDA-Public Use
  Company Number: US-AGIOS-2311US03533

PATIENT
  Sex: Female

DRUGS (1)
  1. MITAPIVAT [Suspect]
     Active Substance: MITAPIVAT
     Indication: Haemolytic anaemia enzyme specific
     Dosage: 20 MILLIGRAM, BID
     Route: 048
     Dates: start: 20221215

REACTIONS (2)
  - Haemoglobin decreased [Unknown]
  - Blood bilirubin abnormal [Unknown]
